FAERS Safety Report 18296670 (Version 1)
Quarter: 2020Q3

REPORT INFORMATION
  Report Type: Spontaneous
  Country: US (occurrence: US)
  Receive Date: 20200922
  Receipt Date: 20200922
  Transmission Date: 20201103
  Serious: Yes (Other)
  Sender: FDA-Public Use
  Company Number: US-TEVA-2020-US-1830460

PATIENT
  Sex: Female

DRUGS (2)
  1. OXYCONTIN [Suspect]
     Active Substance: OXYCODONE HYDROCHLORIDE
     Indication: MUSCULAR DYSTROPHY
     Route: 065
     Dates: start: 1995
  2. FENTANYL. [Suspect]
     Active Substance: FENTANYL
     Indication: MUSCULAR DYSTROPHY
     Route: 065
     Dates: start: 1995

REACTIONS (2)
  - Drug dependence [Unknown]
  - Impaired quality of life [Unknown]
